FAERS Safety Report 8606171-5 (Version None)
Quarter: 2012Q3

REPORT INFORMATION
  Report Type: 
  Country: None (occurrence: None)
  Receive Date: 20120809
  Receipt Date: 20120809
  Transmission Date: 20120928
  Serious: No
  Sender: FDA-Public Use
  Company Number: None

PATIENT
  Age: 70 Year
  Sex: Female
  Weight: 72.5755 kg

DRUGS (1)
  1. RENAGEL [Suspect]
     Indication: RENAL FAILURE
     Dosage: 800 MG 3 PO
     Route: 048
     Dates: start: 20100101

REACTIONS (3)
  - DIZZINESS [None]
  - ABDOMINAL DISCOMFORT [None]
  - PRODUCT ODOUR ABNORMAL [None]
